FAERS Safety Report 24209436 (Version 1)
Quarter: 2024Q3

REPORT INFORMATION
  Report Type: Spontaneous
  Country: US (occurrence: None)
  Receive Date: 20240813
  Receipt Date: 20240813
  Transmission Date: 20241017
  Serious: Yes (Hospitalization, Other)
  Sender: Public
  Company Number: None

PATIENT
  Age: 73 Year
  Sex: Male

DRUGS (1)
  1. LENALIDOMIDE [Suspect]
     Active Substance: LENALIDOMIDE
     Indication: Plasma cell myeloma
     Dosage: 20MG QD ORAL?
     Route: 048
     Dates: start: 20211126

REACTIONS (8)
  - Cardiogenic shock [None]
  - Atrial fibrillation [None]
  - Cardiac failure acute [None]
  - Heart failure with reduced ejection fraction [None]
  - Acute respiratory failure [None]
  - Respiratory failure [None]
  - Acute kidney injury [None]
  - Therapy interrupted [None]

NARRATIVE: CASE EVENT DATE: 20240813
